FAERS Safety Report 5284827-2 (Version None)
Quarter: 2007Q2

REPORT INFORMATION
  Report Type: 
  Country: None (occurrence: None)
  Receive Date: 20070403
  Receipt Date: 20070330
  Transmission Date: 20071010
  Serious: Yes (Hospitalization)
  Sender: FDA-Public Use
  Company Number: US-BRISTOL-MYERS SQUIBB COMPANY-13733647

PATIENT
  Age: 65 Year
  Sex: Female

DRUGS (8)
  1. CETUXIMAB [Suspect]
     Indication: ENDOMETRIAL CANCER RECURRENT
     Route: 042
     Dates: start: 20070319, end: 20070319
  2. LIPITOR [Concomitant]
  3. LORTAB [Concomitant]
     Indication: PAIN
  4. SENOKOT [Concomitant]
  5. DECADRON [Concomitant]
  6. ABH [Concomitant]
     Indication: VOMITING
  7. AMBIEN [Concomitant]
     Indication: SLEEP DISORDER
  8. LOVENOX [Concomitant]
     Route: 058

REACTIONS (6)
  - ABDOMINAL DISTENSION [None]
  - ANAEMIA [None]
  - ANOREXIA [None]
  - DEHYDRATION [None]
  - DYSURIA [None]
  - FATIGUE [None]
